FAERS Safety Report 8561741-8 (Version None)
Quarter: 2012Q3

REPORT INFORMATION
  Report Type: 
  Country: None (occurrence: None)
  Receive Date: 20120802
  Receipt Date: 20120724
  Transmission Date: 20120928
  Serious: No
  Sender: FDA-Public Use
  Company Number: US-ASTRAZENECA-2012SE52207

PATIENT
  Age: 75 Year
  Sex: Male
  Weight: 63.5 kg

DRUGS (6)
  1. NEBULIZER MEDICINE [Concomitant]
  2. PULMICORT FLEXHALER [Suspect]
     Indication: CHRONIC OBSTRUCTIVE PULMONARY DISEASE
     Route: 055
  3. TOPROL-XL [Concomitant]
  4. ALBUTEROL [Concomitant]
  5. CHOLESTEROL MEDICATION [Concomitant]
  6. LISINOPRIL [Concomitant]

REACTIONS (3)
  - DRUG INEFFECTIVE [None]
  - OFF LABEL USE [None]
  - RESPIRATORY DISTRESS [None]
